FAERS Safety Report 7059682-0 (Version None)
Quarter: 2010Q4

REPORT INFORMATION
  Report Type: 
  Country: None (occurrence: None)
  Receive Date: 20101025
  Receipt Date: 20101013
  Transmission Date: 20110411
  Serious: Yes (Death, Hospitalization)
  Sender: FDA-Public Use
  Company Number: JP-ACTELION-A-CH2010-40671

PATIENT
  Age: 70 Year
  Sex: Female

DRUGS (7)
  1. TRACLEER [Suspect]
     Indication: PULMONARY ARTERIAL HYPERTENSION
     Dosage: 125 MG, BID
     Route: 048
     Dates: start: 20080408, end: 20100729
  2. PREDNISOLONE [Concomitant]
  3. SARPOGRELATE [Concomitant]
  4. TRIMEBUTINE MALEATE [Concomitant]
  5. VOGLIBOSE [Concomitant]
  6. CEVIMELINE HYDROCHLORIDE [Concomitant]
  7. OXYGEN [Concomitant]

REACTIONS (5)
  - DISEASE PROGRESSION [None]
  - DYSPNOEA EXERTIONAL [None]
  - OEDEMA [None]
  - PULMONARY ARTERIAL HYPERTENSION [None]
  - RIGHT VENTRICULAR FAILURE [None]
